FAERS Safety Report 9846778 (Version 1)
Quarter: 2014Q1

REPORT INFORMATION
  Report Type: Spontaneous
  Country: FR (occurrence: FR)
  Receive Date: 20140127
  Receipt Date: 20140127
  Transmission Date: 20141002
  Serious: Yes (Hospitalization)
  Sender: FDA-Public Use
  Company Number: FR-ACTAVIS-2013-24690

PATIENT
  Age: 75 Year
  Sex: Female

DRUGS (5)
  1. PANTOPRAZOLE ACTAVIS [Suspect]
     Indication: PAIN
     Dosage: 40 MG, DAILY
     Route: 048
     Dates: start: 20131004, end: 20131004
  2. ALPRAZOLAM ARROW [Suspect]
     Indication: ANXIETY
     Dosage: 0.25 MG, DAILY
     Route: 048
     Dates: start: 20131004, end: 20131004
  3. BIPROFENID [Suspect]
     Indication: PAIN
     Dosage: 100 MG, QOD
     Route: 048
     Dates: start: 20131004, end: 20131005
  4. THIOCOLCHICOSIDE SANDOZ [Suspect]
     Indication: MUSCLE SPASMS
     Dosage: 8 MG, EVERY 4 DAYS
     Route: 048
  5. DAFALGAN [Suspect]
     Indication: PAIN
     Dosage: 1000 MG, DAILY
     Route: 048
     Dates: start: 20131004, end: 20131005

REACTIONS (7)
  - Diarrhoea [Recovered/Resolved]
  - Malaise [Recovered/Resolved]
  - Abdominal pain [Recovered/Resolved]
  - Hypotension [Recovered/Resolved]
  - Bradycardia [Recovered/Resolved]
  - Abdominal rigidity [Recovered/Resolved]
  - Hyperhidrosis [Recovered/Resolved]
